FAERS Safety Report 11238636 (Version 3)
Quarter: 2015Q3

REPORT INFORMATION
  Report Type: Report from Study
  Country: MX (occurrence: MX)
  Receive Date: 20150706
  Receipt Date: 20150812
  Transmission Date: 20151125
  Serious: Yes (Hospitalization, Other)
  Sender: FDA-Public Use
  Company Number: PHHY2015MX076111

PATIENT
  Age: 52 Year
  Sex: Male

DRUGS (5)
  1. LORAZEPAM. [Concomitant]
     Active Substance: LORAZEPAM
     Indication: SLEEP DISORDER
     Dosage: 1 DF, ? AT MORNING, ? AT MIDDAY AND ? AT NIGHT
     Route: 065
  2. TEGRETOL [Suspect]
     Active Substance: CARBAMAZEPINE
     Indication: BIPOLAR DISORDER
     Dosage: 2 DF, QD
     Route: 048
     Dates: start: 20150529
  3. TEGRETOL [Suspect]
     Active Substance: CARBAMAZEPINE
     Indication: SCHIZOPHRENIA
     Dosage: 3 DF, QD
     Route: 048
  4. OLANZAPINE. [Concomitant]
     Active Substance: OLANZAPINE
     Indication: PRODUCT USED FOR UNKNOWN INDICATION
     Dosage: 1 DF, QD
     Route: 048
  5. AMANTADINE [Concomitant]
     Active Substance: AMANTADINE
     Indication: NERVOUS SYSTEM DISORDER
     Dosage: 2 DF, QD
     Route: 065

REACTIONS (8)
  - Bipolar disorder [Recovered/Resolved]
  - Pneumonia pseudomonal [Recovered/Resolved]
  - Productive cough [Recovered/Resolved]
  - Catatonia [Recovered/Resolved]
  - Nervous system disorder [Unknown]
  - Gastrointestinal haemorrhage [Recovered/Resolved]
  - Condition aggravated [Recovered/Resolved]
  - Off label use [Not Recovered/Not Resolved]

NARRATIVE: CASE EVENT DATE: 20150530
